FAERS Safety Report 22053187 (Version 1)
Quarter: 2023Q1

REPORT INFORMATION
  Report Type: Spontaneous
  Country: DE (occurrence: DE)
  Receive Date: 20230302
  Receipt Date: 20230302
  Transmission Date: 20230417
  Serious: Yes (Hospitalization)
  Sender: FDA-Public Use
  Company Number: DE-STRIDES ARCOLAB LIMITED-2023SP003079

PATIENT
  Age: 3 Decade
  Sex: Male

DRUGS (2)
  1. PREDNISOLONE [Suspect]
     Active Substance: PREDNISOLONE
     Indication: Dermatitis atopic
     Dosage: UNK, THE DOSAGE OF PREDNISOLONE WAS INDEPENDENTLY SELECTED BY PATIENT, DEPENDING ON THE SKIN FINDING
     Route: 065
  2. PREDNISOLONE [Suspect]
     Active Substance: PREDNISOLONE
     Dosage: 20 MG PER DAY, (DRUG WAS CONTINUED AT A DOSE OF 20MG PER DAY DURING HOSPITALISATION WITH A PLAN OF T
     Route: 065

REACTIONS (8)
  - Intentional product misuse [Unknown]
  - Incorrect product administration duration [Unknown]
  - Central obesity [Unknown]
  - Skin striae [Unknown]
  - Cataract [Unknown]
  - Hand fracture [Unknown]
  - Type 2 diabetes mellitus [Unknown]
  - Osteoporosis [Unknown]
